FAERS Safety Report 6193145-X (Version None)
Quarter: 2009Q2

REPORT INFORMATION
  Report Type: 
  Country: None (occurrence: None)
  Receive Date: 20090518
  Receipt Date: 20090508
  Transmission Date: 20091009
  Serious: Yes (Hospitalization, Congenital Anomaly)
  Sender: FDA-Public Use
  Company Number: A0679758A

PATIENT
  Sex: Male
  Weight: 3.9 kg

DRUGS (3)
  1. PAXIL [Suspect]
     Indication: DEPRESSION
     Dates: start: 20000101, end: 20010101
  2. PAXIL CR [Suspect]
     Indication: DEPRESSION
     Dates: start: 20000101, end: 20010101
  3. VITAMIN TAB [Concomitant]

REACTIONS (4)
  - ATRIAL SEPTAL DEFECT [None]
  - DRUG EXPOSURE DURING PREGNANCY [None]
  - FALLOT'S TETRALOGY [None]
  - VENTRICULAR SEPTAL DEFECT [None]
